FAERS Safety Report 9461229 (Version 1)
Quarter: 2013Q3

REPORT INFORMATION
  Report Type: Spontaneous
  Country: US (occurrence: None)
  Receive Date: 20130814
  Receipt Date: 20130814
  Transmission Date: 20140515
  Serious: No
  Sender: FDA-Public Use
  Company Number: None

PATIENT
  Age: 55 Year
  Sex: Female
  Weight: 65.77 kg

DRUGS (1)
  1. PIOGLITAZONE HCL 30 MG -ACTOS- [Suspect]
     Indication: TYPE 2 DIABETES MELLITUS
     Dosage: 30 MG 1 TABLET DAILY BY MOUTH
     Route: 048
     Dates: start: 20130205, end: 20130206

REACTIONS (3)
  - Dizziness [None]
  - Balance disorder [None]
  - Vision blurred [None]
